FAERS Safety Report 6147797-0 (Version None)
Quarter: 2009Q2

REPORT INFORMATION
  Report Type: 
  Country: None (occurrence: None)
  Receive Date: 20090402
  Receipt Date: 20090212
  Transmission Date: 20091009
  Serious: No
  Sender: FDA-Public Use
  Company Number: 1000003951

PATIENT
  Age: 57 Year
  Sex: Female

DRUGS (4)
  1. BYSTOLIC [Suspect]
     Indication: TREMOR
     Dosage: 20 MG (10 MG, 2 IN 1 D) ORAL
     Route: 048
     Dates: start: 20080701
  2. TOPROL-XL [Concomitant]
  3. JANUVIA [Concomitant]
  4. SYNTHROID [Concomitant]

REACTIONS (1)
  - LIVER FUNCTION TEST ABNORMAL [None]
